FAERS Safety Report 9733995 (Version 1)
Quarter: 2013Q4

REPORT INFORMATION
  Report Type: Spontaneous
  Country: GB (occurrence: GB)
  Receive Date: 20131205
  Receipt Date: 20131205
  Transmission Date: 20140711
  Serious: Yes (Hospitalization)
  Sender: FDA-Public Use
  Company Number: GB-BAUSCH-BL-2013-006733

PATIENT
  Age: 61 Year
  Sex: Female
  Weight: 60.3 kg

DRUGS (11)
  1. DEXAMETHASONE [Suspect]
     Indication: PLASMA CELL MYELOMA
     Route: 065
     Dates: start: 201310
  2. DEXAMETHASONE [Suspect]
     Route: 065
  3. DOXORUBICIN [Suspect]
     Indication: PLASMA CELL MYELOMA
  4. DOXORUBICIN [Suspect]
  5. BORTEZOMIB [Suspect]
     Indication: PLASMA CELL MYELOMA
     Route: 065
  6. ACICLOVIR [Concomitant]
     Indication: CHEMOTHERAPY
     Route: 048
     Dates: start: 20130918
  7. ALLOPURINOL [Concomitant]
     Indication: PRODUCT USED FOR UNKNOWN INDICATION
     Route: 048
     Dates: start: 20130918, end: 20131110
  8. SULFAMETHOXAZOLE/TRIMETHOPRIM [Concomitant]
     Indication: PROPHYLAXIS
     Route: 048
     Dates: start: 20130918
  9. ENOXAPARIN [Concomitant]
     Indication: PROPHYLAXIS
     Route: 058
  10. LENALIDOMIDE [Concomitant]
     Indication: CHEMOTHERAPY
     Route: 048
     Dates: start: 20131031
  11. RANITIDINE [Concomitant]
     Indication: PROPHYLAXIS
     Route: 048
     Dates: start: 20130915

REACTIONS (3)
  - Drug ineffective [Unknown]
  - Hypercalcaemia [Unknown]
  - Upper respiratory tract infection [Unknown]
